FAERS Safety Report 16361194 (Version 1)
Quarter: 2019Q2

REPORT INFORMATION
  Report Type: Spontaneous
  Country: US (occurrence: US)
  Receive Date: 20190419
  Receipt Date: 20190419
  Transmission Date: 20190711
  Serious: Yes (Other)
  Sender: FDA-Public Use
  Company Number: None

PATIENT
  Age: 80 Year
  Sex: Female
  Weight: 62.14 kg

DRUGS (10)
  1. LOSARTAN AND HYDROCHLOROTHIAZIDE [Suspect]
     Active Substance: HYDROCHLOROTHIAZIDE\LOSARTAN POTASSIUM
     Indication: HYPERTENSION
     Dosage: ?          OTHER STRENGTH:50-12.5 MG ;QUANTITY:1 PILL;?
     Route: 048
     Dates: start: 20190410, end: 20190414
  2. BREO ELLIPTA [Concomitant]
     Active Substance: FLUTICASONE FUROATE\VILANTEROL TRIFENATATE
  3. VITAMIN D [Concomitant]
     Active Substance: VITAMIN D NOS
  4. CHOPIDOGREL 75 MG [Concomitant]
  5. ASPIRIN. [Concomitant]
     Active Substance: ASPIRIN
  6. ALPRAZOLAM 0.25 TAB [Concomitant]
  7. PRILOSEC [Concomitant]
     Active Substance: OMEPRAZOLE MAGNESIUM
  8. VITAMN D3 25MG [Concomitant]
  9. CALCIUM 600 MG [Concomitant]
  10. METOPROLOL TART 100MG [Concomitant]

REACTIONS (7)
  - Wheezing [None]
  - Dyspnoea [None]
  - Cough [None]
  - Dry throat [None]
  - Oropharyngeal pain [None]
  - Influenza like illness [None]
  - Headache [None]

NARRATIVE: CASE EVENT DATE: 20190410
